FAERS Safety Report 8428293-4 (Version None)
Quarter: 2012Q2

REPORT INFORMATION
  Report Type: 
  Country: None (occurrence: None)
  Receive Date: 20120611
  Receipt Date: 20120604
  Transmission Date: 20120825
  Serious: Yes (Disabling)
  Sender: FDA-Public Use
  Company Number: MX-MERCK-1206USA00921

PATIENT
  Age: 52 Year
  Sex: Female

DRUGS (1)
  1. FOSAMAX PLUS D [Suspect]
     Indication: OSTEOPENIA
     Dosage: 70 MG WEEKLY
     Route: 048

REACTIONS (3)
  - RENAL DISORDER [None]
  - ABASIA [None]
  - SPINAL PAIN [None]
